FAERS Safety Report 10677391 (Version 1)
Quarter: 2014Q4

REPORT INFORMATION
  Report Type: Spontaneous
  Country: US (occurrence: US)
  Receive Date: 20141227
  Receipt Date: 20141227
  Transmission Date: 20150529
  Serious: No
  Sender: FDA-Public Use
  Company Number: US-EMD SERONO-8001764

PATIENT
  Age: 40 Year
  Sex: Female

DRUGS (1)
  1. REBIF [Suspect]
     Active Substance: INTERFERON BETA-1A
     Indication: PRODUCT USED FOR UNKNOWN INDICATION
     Route: 058
     Dates: start: 201312

REACTIONS (5)
  - Glossitis [Unknown]
  - Swollen tongue [Unknown]
  - Stomatitis [Unknown]
  - Aphthous stomatitis [Unknown]
  - Tongue haemorrhage [Unknown]

NARRATIVE: CASE EVENT DATE: 201402
